FAERS Safety Report 6638421-9 (Version None)
Quarter: 2010Q1

REPORT INFORMATION
  Report Type: 
  Country: None (occurrence: None)
  Receive Date: 20100312
  Receipt Date: 20100304
  Transmission Date: 20100710
  Serious: Yes (Other)
  Sender: FDA-Public Use
  Company Number: 2010JP001351

PATIENT
  Age: 35 Year
  Sex: Female

DRUGS (1)
  1. PROGRAF [Suspect]

REACTIONS (1)
  - NEPHROTIC SYNDROME [None]
